FAERS Safety Report 6118343-2 (Version None)
Quarter: 2009Q1

REPORT INFORMATION
  Report Type: 
  Country: None (occurrence: None)
  Receive Date: 20090314
  Receipt Date: 20090213
  Transmission Date: 20090719
  Serious: No
  Sender: FDA-Public Use
  Company Number: US-ABBOTT-09P-163-0557499-00

PATIENT
  Sex: Female
  Weight: 72.64 kg

DRUGS (7)
  1. HUMIRA [Suspect]
     Indication: PSORIASIS
     Route: 058
     Dates: start: 20080604, end: 20090105
  2. TRILEPTAL [Concomitant]
     Indication: TRIGEMINAL NEURALGIA
  3. PLAVIX [Concomitant]
     Indication: DRUG USE FOR UNKNOWN INDICATION
  4. ACIPHEX [Concomitant]
     Indication: GASTROOESOPHAGEAL REFLUX DISEASE
  5. COREG [Concomitant]
     Indication: HYPERTENSION
     Route: 048
  6. CLONIDINE [Concomitant]
     Indication: DRUG USE FOR UNKNOWN INDICATION
  7. BENECAR [Concomitant]
     Indication: DRUG USE FOR UNKNOWN INDICATION
     Route: 048

REACTIONS (6)
  - DYSPHAGIA [None]
  - MEMORY IMPAIRMENT [None]
  - MOBILITY DECREASED [None]
  - MULTIPLE SCLEROSIS [None]
  - MUSCULAR WEAKNESS [None]
  - SENSATION OF HEAVINESS [None]
